FAERS Safety Report 24290533 (Version 1)
Quarter: 2024Q3

REPORT INFORMATION
  Report Type: Spontaneous
  Country: IN (occurrence: IN)
  Receive Date: 20240906
  Receipt Date: 20240906
  Transmission Date: 20241017
  Serious: Yes (Hospitalization, Other)
  Sender: RANBAXY
  Company Number: IN-SUN PHARMACEUTICAL INDUSTRIES LTD-2024R1-466063

PATIENT
  Age: 26 Year
  Sex: Male

DRUGS (3)
  1. DOXYCYCLINE [Suspect]
     Active Substance: DOXYCYCLINE\DOXYCYCLINE HYCLATE
     Indication: Mycetoma mycotic
     Dosage: UNK UNK, BID
     Route: 065
  2. COTRIMOXAZOLE [Suspect]
     Active Substance: SULFAMETHOXAZOLE\TRIMETHOPRIM
     Indication: Mycetoma mycotic
     Dosage: 960 MILLIGRAM, BID
     Route: 065
  3. GENTAMICIN [Suspect]
     Active Substance: GENTAMICIN
     Indication: Mycetoma mycotic
     Dosage: 80 MILLIGRAM, BID
     Route: 042

REACTIONS (3)
  - Burning sensation [Unknown]
  - Condition aggravated [Not Recovered/Not Resolved]
  - Treatment noncompliance [Unknown]
